FAERS Safety Report 23668112 (Version 2)
Quarter: 2024Q2

REPORT INFORMATION
  Report Type: Spontaneous
  Country: US (occurrence: US)
  Receive Date: 20240325
  Receipt Date: 20240413
  Transmission Date: 20240716
  Serious: Yes (Other)
  Sender: FDA-Public Use
  Company Number: US-AUROBINDO-AUR-APL-2024-013249

PATIENT
  Age: 23 Year
  Sex: Female

DRUGS (5)
  1. METHYLPREDNISOLONE [Suspect]
     Active Substance: METHYLPREDNISOLONE
     Indication: Thrombotic thrombocytopenic purpura
     Dosage: UNK
     Route: 065
  2. RITUXIMAB [Suspect]
     Active Substance: RITUXIMAB
     Indication: Thrombotic thrombocytopenic purpura
     Dosage: UNK, TWO TIMES A DAY
     Route: 065
  3. RITUXIMAB [Suspect]
     Active Substance: RITUXIMAB
     Indication: Coombs test positive
  4. CAPLACIZUMAB [Suspect]
     Active Substance: CAPLACIZUMAB
     Indication: Thrombotic thrombocytopenic purpura
     Dosage: UNK, TWO TIMES A DAY
     Route: 065
  5. CAPLACIZUMAB [Suspect]
     Active Substance: CAPLACIZUMAB
     Indication: Coombs test positive

REACTIONS (1)
  - Drug ineffective [Unknown]
